FAERS Safety Report 9055846 (Version 1)
Quarter: 2013Q1

REPORT INFORMATION
  Report Type: Spontaneous
  Country: US (occurrence: US)
  Receive Date: 20130206
  Receipt Date: 20130206
  Transmission Date: 20140127
  Serious: No
  Sender: FDA-Public Use
  Company Number: US-ALLERGAN-1203272US

PATIENT
  Sex: Female

DRUGS (4)
  1. RESTASIS? [Suspect]
     Indication: DRY EYE
     Dosage: 2 GTT, BID
     Route: 047
     Dates: start: 20120303
  2. AZOPT [Concomitant]
     Indication: GLAUCOMA
     Dosage: 2 GTT, TID
     Route: 047
  3. TRAVATAN Z [Concomitant]
     Indication: GLAUCOMA
     Dosage: 2 GTT, QD
     Route: 047
  4. TIMOLOL MALEATE [Concomitant]
     Indication: GLAUCOMA
     Dosage: 2 GTT, BID
     Route: 047

REACTIONS (7)
  - Drug hypersensitivity [Unknown]
  - Dry eye [Unknown]
  - Eye pain [Unknown]
  - Urticaria [Unknown]
  - Urticaria [Unknown]
  - Urticaria [Unknown]
  - Urticaria [Unknown]
